FAERS Safety Report 8272095-9 (Version None)
Quarter: 2012Q2

REPORT INFORMATION
  Report Type: 
  Country: None (occurrence: None)
  Receive Date: 20120410
  Receipt Date: 20120330
  Transmission Date: 20120825
  Serious: Yes (Hospitalization, Other)
  Sender: FDA-Public Use
  Company Number: US-JNJFOC-20120401052

PATIENT
  Age: 58 Year
  Sex: Female

DRUGS (5)
  1. REMICADE [Suspect]
     Indication: CROHN'S DISEASE
     Route: 042
     Dates: start: 20110801
  2. PREDNISONE TAB [Concomitant]
     Route: 065
  3. CIPROFLOXACIN HCL [Concomitant]
     Route: 065
  4. ASACOL [Concomitant]
     Route: 065
  5. FLAGYL [Concomitant]
     Route: 065

REACTIONS (2)
  - CARDIOMEGALY [None]
  - LUPUS-LIKE SYNDROME [None]
